FAERS Safety Report 19994101 (Version 1)
Quarter: 2021Q4

REPORT INFORMATION
  Report Type: Spontaneous
  Country: US (occurrence: US)
  Receive Date: 20211025
  Receipt Date: 20211025
  Transmission Date: 20220303
  Serious: Yes (Other)
  Sender: FDA-Public Use
  Company Number: None

PATIENT
  Sex: Male

DRUGS (2)
  1. SUNITINIB [Suspect]
     Active Substance: SUNITINIB
     Indication: Pancreatic carcinoma
     Dosage: TWO WEEKS ON AND ONE WEEK OFF
     Route: 048
     Dates: start: 20210917
  2. SUTENT [Concomitant]
     Active Substance: SUNITINIB MALATE

REACTIONS (2)
  - Loss of consciousness [None]
  - Optic nerve sheath haemorrhage [None]
